FAERS Safety Report 8477298-6 (Version None)
Quarter: 2012Q2

REPORT INFORMATION
  Report Type: 
  Country: None (occurrence: None)
  Receive Date: 20120629
  Receipt Date: 20120619
  Transmission Date: 20120825
  Serious: Yes (Other)
  Sender: FDA-Public Use
  Company Number: IN-JNJFOC-20120610370

PATIENT
  Age: 31 Year
  Sex: Male

DRUGS (1)
  1. REMICADE [Suspect]
     Indication: ANKYLOSING SPONDYLITIS
     Route: 042
     Dates: start: 20120522, end: 20120605

REACTIONS (2)
  - PYREXIA [None]
  - LYMPHADENITIS [None]
